FAERS Safety Report 15292988 (Version 2)
Quarter: 2018Q3

REPORT INFORMATION
  Report Type: Spontaneous
  Country: US (occurrence: US)
  Receive Date: 20180819
  Receipt Date: 20180828
  Transmission Date: 20181010
  Serious: Yes (Hospitalization)
  Sender: FDA-Public Use
  Company Number: US-BIOGEN-2018BI00621046

PATIENT
  Age: 40 Year
  Sex: Female

DRUGS (2)
  1. OCREVUS [Suspect]
     Active Substance: OCRELIZUMAB
     Indication: PRODUCT USED FOR UNKNOWN INDICATION
     Route: 065
  2. TYSABRI [Suspect]
     Active Substance: NATALIZUMAB
     Indication: MULTIPLE SCLEROSIS
     Route: 065
     Dates: start: 20141008, end: 20180403

REACTIONS (5)
  - Peripheral swelling [Recovered/Resolved]
  - Oral herpes [Unknown]
  - Multiple sclerosis relapse [Recovered/Resolved]
  - Dyspnoea [Unknown]
  - Dental restoration failure [Unknown]

NARRATIVE: CASE EVENT DATE: 201805
